FAERS Safety Report 11875071 (Version 1)
Quarter: 2015Q4

REPORT INFORMATION
  Report Type: Report from Study
  Country: CN (occurrence: CN)
  Receive Date: 20151229
  Receipt Date: 20151229
  Transmission Date: 20160305
  Serious: Yes (Other)
  Sender: FDA-Public Use
  Company Number: CN-ROCHE-1685058

PATIENT

DRUGS (9)
  1. OXALIPLATIN. [Suspect]
     Active Substance: OXALIPLATIN
     Dosage: IN 250 ML DEXTROSE 5%,
     Route: 065
  2. CAPECITABINE. [Suspect]
     Active Substance: CAPECITABINE
     Indication: COLORECTAL CANCER METASTATIC
     Dosage: FROM DAY 2 TO 14.
     Route: 048
  3. OXALIPLATIN. [Suspect]
     Active Substance: OXALIPLATIN
     Indication: COLORECTAL CANCER METASTATIC
     Dosage: A 120-MINUTE INFUSION
     Route: 065
  4. IRINOTECAN [Suspect]
     Active Substance: IRINOTECAN
     Indication: COLORECTAL CANCER METASTATIC
     Dosage: A 60-MINUTE INFUSION
     Route: 065
  5. FLUOROURACIL. [Suspect]
     Active Substance: FLUOROURACIL
     Indication: COLORECTAL CANCER METASTATIC
     Dosage: A 48-HOUR CONTINUOUS INFUSION
     Route: 065
  6. BEVACIZUMAB [Suspect]
     Active Substance: BEVACIZUMAB
     Indication: COLORECTAL CANCER METASTATIC
     Dosage: A 30-MINUTE INFUSION
     Route: 065
  7. IRINOTECAN [Suspect]
     Active Substance: IRINOTECAN
     Dosage: A 60-MINUTE INFUSION ?FOR DOSE LEVELS 1, 2, AND 3) IN 250 ML OF NORMAL SALINE OVER 1 H ON DAY 1,
     Route: 065
  8. LEUCOVORIN. [Suspect]
     Active Substance: LEUCOVORIN
     Indication: COLORECTAL CANCER METASTATIC
     Dosage: 120-MINUTE INFUSION
     Route: 065
  9. BEVACIZUMAB [Suspect]
     Active Substance: BEVACIZUMAB
     Dosage: ON DAY 01, ?THE FIRST INFUSION WAS DELIVERED OVER 90 MIN, THE SECOND INFUSION OVER 1 H, AND SUBSEQUE
     Route: 065

REACTIONS (11)
  - Vomiting [Unknown]
  - Neuropathy peripheral [Unknown]
  - Hypertension [Unknown]
  - Febrile neutropenia [Unknown]
  - Stomatitis [Unknown]
  - Neurotoxicity [Unknown]
  - Neutropenia [Unknown]
  - Nausea [Unknown]
  - Diarrhoea [Unknown]
  - Embolism venous [Unknown]
  - Asthenia [Unknown]
